FAERS Safety Report 16838792 (Version 1)
Quarter: 2019Q3

REPORT INFORMATION
  Report Type: Spontaneous
  Country: TN (occurrence: TN)
  Receive Date: 20190923
  Receipt Date: 20190923
  Transmission Date: 20191005
  Serious: Yes (Other)
  Sender: FDA-Public Use
  Company Number: TN-CELGENEUS-TUN-20190906426

PATIENT
  Age: 51 Year
  Sex: Male

DRUGS (5)
  1. LEVOFLAXIN [Concomitant]
     Active Substance: LEVOFLOXACIN
     Indication: PLASMA CELL MYELOMA
     Dosage: 500 MILLIGRAM
     Route: 065
  2. DEXAMETHASONE. [Concomitant]
     Active Substance: DEXAMETHASONE
     Indication: PLASMA CELL MYELOMA
     Dosage: 20 MILLIGRAM/SQ. METER/DAY
     Route: 065
  3. CYMEVAN [Concomitant]
     Active Substance: GANCICLOVIR
     Indication: PLASMA CELL MYELOMA
     Dosage: 500 MILLIGRAM
     Route: 065
  4. THALIDOMIDE CELGENE [Suspect]
     Active Substance: THALIDOMIDE
     Indication: PLASMA CELL MYELOMA
     Dosage: 200 MILLIGRAM
     Route: 048
  5. MELPHALAN. [Concomitant]
     Active Substance: MELPHALAN
     Indication: PLASMA CELL MYELOMA
     Dosage: .15 MILLIGRAM/KILOGRAM
     Route: 065

REACTIONS (1)
  - Organising pneumonia [Recovering/Resolving]
